FAERS Safety Report 8989357 (Version 1)
Quarter: 2012Q4

REPORT INFORMATION
  Report Type: 
  Country: US (occurrence: US)
  Receive Date: 20121228
  Receipt Date: 20121228
  Transmission Date: 20130627
  Serious: Yes (Hospitalization, Disabling)
  Sender: FDA-Public Use
  Company Number: US-BAYER-2012-135594

PATIENT
  Sex: Female

DRUGS (3)
  1. YAZ [Suspect]
     Dosage: UNK
     Dates: start: 200312, end: 201207
  2. YASMIN [Suspect]
     Dosage: UNK
     Dates: start: 200312, end: 201207
  3. OCELLA [Suspect]
     Dosage: UNK
     Dates: start: 200312, end: 201207

REACTIONS (6)
  - Gallbladder disorder [None]
  - Injury [None]
  - Pain [None]
  - Deformity [None]
  - Anxiety [None]
  - Anhedonia [None]
